FAERS Safety Report 5255268-9 (Version None)
Quarter: 2007Q1

REPORT INFORMATION
  Report Type: 
  Country: None (occurrence: None)
  Receive Date: 20070305
  Receipt Date: 20070222
  Transmission Date: 20070707
  Serious: Yes (Other)
  Sender: FDA-Public Use
  Company Number: GB-ROCHE-484828

PATIENT
  Age: 46 Year
  Sex: Male
  Weight: 156 kg

DRUGS (2)
  1. XENICAL [Suspect]
     Indication: OBESITY
     Route: 048
     Dates: start: 20051115
  2. XENICAL [Suspect]
     Route: 048
     Dates: start: 20061120

REACTIONS (1)
  - INTERNATIONAL NORMALISED RATIO INCREASED [None]
